FAERS Safety Report 9443115 (Version 2)
Quarter: 2013Q3

REPORT INFORMATION
  Report Type: Spontaneous
  Country: FR (occurrence: FR)
  Receive Date: 20130806
  Receipt Date: 20130827
  Transmission Date: 20140515
  Serious: Yes (Other)
  Sender: FDA-Public Use
  Company Number: FR-WATSON-2013-13289

PATIENT
  Age: 20 Year
  Sex: Male

DRUGS (2)
  1. LIORESAL [Suspect]
     Indication: PRODUCT USED FOR UNKNOWN INDICATION
     Dosage: 80 MG, SINGLE
     Route: 048
  2. LIORESAL [Suspect]
     Dosage: UNK
     Route: 037

REACTIONS (4)
  - Respiratory failure [Unknown]
  - Respiratory acidosis [Unknown]
  - Depressed level of consciousness [Unknown]
  - Confusional state [Unknown]
